FAERS Safety Report 7110148-9 (Version None)
Quarter: 2010Q4

REPORT INFORMATION
  Report Type: 
  Country: None (occurrence: None)
  Receive Date: 20101116
  Receipt Date: 20101116
  Transmission Date: 20110411
  Serious: Yes (Other)
  Sender: FDA-Public Use
  Company Number: None

PATIENT
  Age: 56 Year
  Weight: 86.1834 kg

DRUGS (1)
  1. RAPAFLO [Suspect]
     Dosage: 8MG DAILY PO
     Route: 048
     Dates: start: 20101021, end: 20101110

REACTIONS (4)
  - DIARRHOEA [None]
  - DYSPHAGIA [None]
  - DYSPNOEA [None]
  - PROSTATIC SPECIFIC ANTIGEN INCREASED [None]
